FAERS Safety Report 5826969-6 (Version None)
Quarter: 2008Q3

REPORT INFORMATION
  Report Type: 
  Country: None (occurrence: None)
  Receive Date: 20080730
  Receipt Date: 20080723
  Transmission Date: 20090109
  Serious: No
  Sender: FDA-Public Use
  Company Number: FR-WYE-H03896908

PATIENT
  Age: 70 Year
  Sex: Female
  Weight: 45 kg

DRUGS (1)
  1. PANTOPRAZOLE SODIUM [Suspect]
     Indication: GASTRODUODENITIS
     Dosage: 20 MG AND 40 MG OVER SEVERAL ATTEMPTS TO START AND STOP
     Route: 048
     Dates: start: 20020101, end: 20080101

REACTIONS (8)
  - ABDOMINAL PAIN [None]
  - COLITIS [None]
  - DEFAECATION URGENCY [None]
  - DRY MOUTH [None]
  - FLATULENCE [None]
  - FREQUENT BOWEL MOVEMENTS [None]
  - GASTROINTESTINAL SOUNDS ABNORMAL [None]
  - WEIGHT DECREASED [None]
